FAERS Safety Report 23751630 (Version 1)
Quarter: 2024Q2

REPORT INFORMATION
  Report Type: Spontaneous
  Country: US (occurrence: None)
  Receive Date: 20240416
  Receipt Date: 20240416
  Transmission Date: 20240716
  Serious: No
  Sender: FDA-Public Use
  Company Number: None

PATIENT
  Age: 43 Year
  Sex: Female
  Weight: 78.75 kg

DRUGS (2)
  1. XOLAIR [Suspect]
     Active Substance: OMALIZUMAB
     Indication: Chronic spontaneous urticaria
     Dosage: OTHER FREQUENCY : ONCE EVERY 4 WEEKS;?
     Route: 058
     Dates: start: 20240402, end: 20240402
  2. XOLAIR [Concomitant]
     Active Substance: OMALIZUMAB
     Dates: start: 20240402, end: 20240402

REACTIONS (3)
  - Anxiety [None]
  - Heart rate increased [None]
  - Urticaria [None]

NARRATIVE: CASE EVENT DATE: 20240403
